FAERS Safety Report 8909097 (Version 8)
Quarter: 2020Q3

REPORT INFORMATION
  Report Type: Spontaneous
  Country: GB (occurrence: GB)
  Receive Date: 20121114
  Receipt Date: 20200709
  Transmission Date: 20201103
  Serious: Yes (Life-Threatening, Hospitalization, Other)
  Sender: FDA-Public Use
  Company Number: GB-PFIZER INC-2012284129

PATIENT
  Age: 72 Year

DRUGS (9)
  1. CEFUROXIME. [Suspect]
     Active Substance: CEFUROXIME
     Dosage: 1.5 G, PATIENT HAD 1 STAT DOSE
     Route: 041
     Dates: start: 20110308, end: 20110308
  2. TRIMETHOPRIM. [Suspect]
     Active Substance: TRIMETHOPRIM
     Indication: URINARY TRACT INFECTION
     Dosage: 200MG 2 XDAY, (PATIENT HAD 2 DOSES)
     Route: 048
     Dates: start: 20110305, end: 20110305
  3. CO?AMOXICLAV [Suspect]
     Active Substance: AMOXICILLIN\CLAVULANATE POTASSIUM
     Indication: SEPSIS
     Dosage: 1.2 G, 3X/DAY
     Route: 041
     Dates: start: 20110328, end: 20110403
  4. ERYTHROMYCIN. [Suspect]
     Active Substance: ERYTHROMYCIN
     Dosage: 125 MG, 3X/DAY
     Route: 042
     Dates: start: 20110319, end: 20110321
  5. METRONIDAZOLE. [Suspect]
     Active Substance: METRONIDAZOLE
     Dosage: 1500 MG, 1X/DAY (100MG / 20ML SOLUTION FOR INFUSION AMPOULES. PATIENT HAD 1 DOSE)
     Route: 041
     Dates: start: 20110308, end: 20110308
  6. FLUCLOXACILLIN [Suspect]
     Active Substance: FLUCLOXACILLIN
     Dosage: 500 MG, 4X/DAY
     Route: 048
     Dates: start: 20100908
  7. PIPERACILLIN/TAZOBACTAM [Suspect]
     Active Substance: PIPERACILLIN SODIUM\TAZOBACTAM SODIUM
     Indication: PNEUMONIA
     Dosage: 4.5 G, 3X/DAY
     Route: 041
     Dates: start: 20110420, end: 20110425
  8. MEROPENEM. [Suspect]
     Active Substance: MEROPENEM
     Indication: PANCREATITIS NECROTISING
     Dosage: 1 G, 3X/DAY
     Route: 041
     Dates: start: 20110309, end: 20110313
  9. CEFTRIAXONE. [Suspect]
     Active Substance: CEFTRIAXONE
     Indication: PANCREATITIS
     Dosage: 1 G, 1X/DAY (PATIENT HAD 1 DOSE)
     Route: 041
     Dates: start: 20110308, end: 20110308

REACTIONS (1)
  - Clostridium test positive [Recovered/Resolved]

NARRATIVE: CASE EVENT DATE: 20110421
